FAERS Safety Report 9913104 (Version 1)
Quarter: 2014Q1

REPORT INFORMATION
  Report Type: Spontaneous
  Country: US (occurrence: None)
  Receive Date: 20140214
  Receipt Date: 20140214
  Transmission Date: 20141002
  Serious: Yes (Hospitalization)
  Sender: FDA-Public Use
  Company Number: AUR-APL-2014-01392

PATIENT
  Age: 60 Year
  Sex: Female

DRUGS (6)
  1. LISINOPRIL(LISINOPRIL) [Suspect]
     Indication: PRODUCT USED FOR UNKNOWN INDICATION
  2. AMIODARONE HCL [Suspect]
     Indication: PRODUCT USED FOR UNKNOWN INDICATION
  3. SPIRONOLACTONE [Suspect]
     Indication: PRODUCT USED FOR UNKNOWN INDICATION
  4. LEVOTHYROXINE SODIUM [Suspect]
     Indication: PRODUCT USED FOR UNKNOWN INDICATION
  5. WARFARIN SODIUM (WARFARIN SODIUM) [Suspect]
     Indication: PRODUCT USED FOR UNKNOWN INDICATION
  6. FUROSEMIDE [Suspect]
     Indication: PRODUCT USED FOR UNKNOWN INDICATION

REACTIONS (16)
  - Disorientation [None]
  - Hyperreflexia [None]
  - Atrial fibrillation [None]
  - Mucous membrane disorder [None]
  - Hyperkalaemia [None]
  - Blood urea increased [None]
  - Blood creatinine increased [None]
  - Haematocrit decreased [None]
  - Hypotension [None]
  - Gastrointestinal haemorrhage [None]
  - Accidental overdose [None]
  - Lip haemorrhage [None]
  - Cardiac murmur [None]
  - Heart rate irregular [None]
  - Tremor [None]
  - International normalised ratio increased [None]
